FAERS Safety Report 18923590 (Version 2)
Quarter: 2021Q1

REPORT INFORMATION
  Report Type: Other
  Country: US (occurrence: US)
  Receive Date: 20210222
  Receipt Date: 20210309
  Transmission Date: 20210420
  Serious: Yes (Hospitalization, Other)
  Sender: FDA-Public Use
  Company Number: US-INTERCEPT-PM2021000242

PATIENT
  Age: 67 Year
  Sex: Female
  Weight: 78.01 kg

DRUGS (25)
  1. OCALIVA [Suspect]
     Active Substance: OBETICHOLIC ACID
     Indication: PRIMARY BILIARY CHOLANGITIS
     Dosage: 5 MILLIGRAM, QD
     Route: 048
     Dates: start: 20160928
  2. LASIX [Concomitant]
     Active Substance: FUROSEMIDE
  3. NORTRIPTYLINE HCL [Concomitant]
     Active Substance: NORTRIPTYLINE HYDROCHLORIDE
  4. VITAMIN C [Concomitant]
     Active Substance: ASCORBIC ACID
  5. VALTREX [Concomitant]
     Active Substance: VALACYCLOVIR HYDROCHLORIDE
  6. OCALIVA [Suspect]
     Active Substance: OBETICHOLIC ACID
     Dosage: 5 MILLIGRAM, QW
     Route: 048
  7. NEXIUM I.V. [Concomitant]
     Active Substance: ESOMEPRAZOLE SODIUM
  8. URSO [Concomitant]
     Active Substance: URSODIOL
  9. POTASSIUM [Concomitant]
     Active Substance: POTASSIUM
  10. OCALIVA [Suspect]
     Active Substance: OBETICHOLIC ACID
     Dosage: 5 MILLIGRAM, 3X/WK
     Route: 048
  11. OCALIVA [Suspect]
     Active Substance: OBETICHOLIC ACID
     Dosage: 5 MILLIGRAM, 3X/WK
     Route: 048
  12. LYRICA [Concomitant]
     Active Substance: PREGABALIN
  13. CALCIUM + D3 [CALCIUM;COLECALCIFEROL] [Concomitant]
     Active Substance: CALCIUM\CHOLECALCIFEROL
  14. GLUCERNA [Concomitant]
     Active Substance: AMINO ACIDS\DEXTROSE\ELECTROLYTES NOS\SOYBEAN OIL\VITAMINS
  15. LEVSIN [Concomitant]
     Active Substance: HYOSCYAMINE SULFATE
  16. PREMARIN [Concomitant]
     Active Substance: ESTROGENS, CONJUGATED
  17. LACTULOSE. [Concomitant]
     Active Substance: LACTULOSE
  18. OCALIVA [Suspect]
     Active Substance: OBETICHOLIC ACID
     Dosage: 5 MILLIGRAM, QD
     Route: 048
     Dates: start: 2017
  19. ALBUMIN (HUMAN) [Concomitant]
     Active Substance: ALBUMIN HUMAN
  20. BENEFIBER [Concomitant]
     Active Substance: STARCH, WHEAT
  21. LIPITOR [Concomitant]
     Active Substance: ATORVASTATIN CALCIUM
  22. XIFAXAN [Concomitant]
     Active Substance: RIFAXIMIN
  23. COLACE [Concomitant]
     Active Substance: DOCUSATE SODIUM
  24. VITAMIN D3 [Concomitant]
     Active Substance: CHOLECALCIFEROL
  25. OCALIVA [Suspect]
     Active Substance: OBETICHOLIC ACID
     Dosage: 5 MILLIGRAM, 2X/WK
     Route: 048

REACTIONS (6)
  - Therapy interrupted [Unknown]
  - Pain [Unknown]
  - Limb injury [Not Recovered/Not Resolved]
  - Limb operation [Recovered/Resolved]
  - Pruritus [Not Recovered/Not Resolved]
  - Toe operation [Recovered/Resolved]

NARRATIVE: CASE EVENT DATE: 2020
